FAERS Safety Report 7374054-7 (Version None)
Quarter: 2011Q1

REPORT INFORMATION
  Report Type: 
  Country: None (occurrence: None)
  Receive Date: 20110317
  Receipt Date: 20110307
  Transmission Date: 20110831
  Serious: Yes (Hospitalization)
  Sender: FDA-Public Use
  Company Number: B0705553A

PATIENT
  Age: 11 Year
  Sex: Male
  Weight: 35.6074 kg

DRUGS (9)
  1. ANTICHOLINERGIC (FORMULATION UNKNOWN) (ANTICHOLINERGIC) [Suspect]
     Dosage: INTRAVENOUS
     Route: 042
  2. BETA-BLOCKER [Concomitant]
  3. ISOFLURANE [Suspect]
     Indication: ANAESTHESIA
  4. PANCURONIUM BROMIDE [Concomitant]
  5. UNKNOWN (FORMULATION UNKNOWN) (UNKNOWN) [Suspect]
     Dosage: INTRAVENOUS
     Route: 042
  6. PROPOFOL [Concomitant]
  7. ONDANSETRON HYDROCHLORIDE [Suspect]
  8. THIOPENTAL SODIUM [Concomitant]
  9. NON-GSK PROPRANOLOL HCL [Concomitant]

REACTIONS (1)
  - TORSADE DE POINTES [None]
